FAERS Safety Report 6978847-7 (Version None)
Quarter: 2010Q3

REPORT INFORMATION
  Report Type: 
  Country: None (occurrence: None)
  Receive Date: 20100913
  Receipt Date: 20100831
  Transmission Date: 20110219
  Serious: Yes (Hospitalization)
  Sender: FDA-Public Use
  Company Number: FR-JNJFOC-20100805898

PATIENT
  Age: 67 Year
  Sex: Female

DRUGS (3)
  1. GOLIMUMAB [Suspect]
     Indication: RHEUMATOID ARTHRITIS
     Route: 058
  2. CORTANCYL [Concomitant]
  3. ARAVA [Concomitant]

REACTIONS (4)
  - ATELECTASIS [None]
  - LUNG NEOPLASM [None]
  - PLEURISY [None]
  - SINUSITIS [None]
